FAERS Safety Report 16775551 (Version 4)
Quarter: 2019Q4

REPORT INFORMATION
  Report Type: Spontaneous
  Country: US (occurrence: US)
  Receive Date: 20190905
  Receipt Date: 20191119
  Transmission Date: 20200122
  Serious: No
  Sender: FDA-Public Use
  Company Number: US-PFIZER INC-2018453257

PATIENT
  Age: 65 Year
  Sex: Female

DRUGS (4)
  1. PHOSPHOLINE IODIDE [Suspect]
     Active Substance: ECHOTHIOPHATE IODIDE
     Indication: OPEN ANGLE GLAUCOMA
     Dosage: 1 GTT, 4X/DAY
  2. PHOSPHOLINE IODIDE [Suspect]
     Active Substance: ECHOTHIOPHATE IODIDE
     Dosage: UNK
  3. PHOSPHOLINE IODIDE [Suspect]
     Active Substance: ECHOTHIOPHATE IODIDE
     Dosage: 2 GTT, 4X/DAY (ONE DROP FOUR TIMES A DAY BOTH EYES EIGHT BOTTLE 90 DAYS SUPPLY)
  4. PHOSPHOLINE IODIDE [Suspect]
     Active Substance: ECHOTHIOPHATE IODIDE
     Dosage: 1 GTT, 4X/DAY (1 DROP 4X DAY 90 DAY SUPPLY 8 BOTTLES)

REACTIONS (2)
  - Product use issue [Unknown]
  - Off label use [Unknown]
